FAERS Safety Report 18343745 (Version 1)
Quarter: 2020Q4

REPORT INFORMATION
  Report Type: Spontaneous
  Country: US (occurrence: US)
  Receive Date: 20201004
  Receipt Date: 20201004
  Transmission Date: 20210114
  Serious: Yes (Disabling, Other)
  Sender: FDA-Public Use
  Company Number: None

PATIENT
  Age: 37 Year
  Sex: Female

DRUGS (4)
  1. BENADRYL [Concomitant]
     Active Substance: DIPHENHYDRAMINE HYDROCHLORIDE
  2. BUSPIRONE [Suspect]
     Active Substance: BUSPIRONE HYDROCHLORIDE
     Indication: ANXIETY
     Dosage: ?          QUANTITY:1 TABLET(S);?
     Route: 048
     Dates: start: 20201003
  3. HYDROXYZINE PAMOATE. [Concomitant]
     Active Substance: HYDROXYZINE PAMOATE
  4. MAGNESIUM OXIDE WITH ZINC [Concomitant]

REACTIONS (6)
  - Headache [None]
  - Spinal pain [None]
  - Back pain [None]
  - Dizziness [None]
  - Amnesia [None]
  - Anger [None]

NARRATIVE: CASE EVENT DATE: 20201003
